FAERS Safety Report 4629166-5 (Version None)
Quarter: 2005Q2

REPORT INFORMATION
  Report Type: 
  Country: None (occurrence: None)
  Receive Date: 20050407
  Receipt Date: 20050324
  Transmission Date: 20051028
  Serious: Yes (Hospitalization)
  Sender: FDA-Public Use
  Company Number: AU-JNJFOC-20050400849

PATIENT
  Sex: Female

DRUGS (7)
  1. TRAMADOL HCL [Suspect]
     Indication: PAIN
     Route: 049
  2. CITALOPRAM HYDROBROMIDE [Concomitant]
     Indication: DEPRESSION
     Route: 065
  3. AMOXICILLIN [Concomitant]
     Route: 049
  4. PARACETAMOL [Concomitant]
     Indication: PAIN
     Route: 065
  5. VOLTAREN [Concomitant]
     Indication: PAIN
     Route: 065
  6. ACETAMINOPHEN [Concomitant]
     Indication: PAIN
     Route: 065
  7. ASPIRIN [Concomitant]
     Indication: PAIN
     Route: 065

REACTIONS (1)
  - PANCREATITIS [None]
